FAERS Safety Report 4758197-X (Version None)
Quarter: 2005Q3

REPORT INFORMATION
  Report Type: 
  Country: None (occurrence: None)
  Receive Date: 20050829
  Receipt Date: 20050816
  Transmission Date: 20060218
  Serious: Yes (Other)
  Sender: FDA-Public Use
  Company Number: 217032

PATIENT
  Age: 44 Year
  Sex: Female
  Weight: 66 kg

DRUGS (2)
  1. MABTHERA (RITUXIMAB) CONC FOR SOLUTION FOR INFUSION [Suspect]
     Indication: LYMPHOMA
     Dosage: 100 MG, QD, INTRAVENOUS; 500 MD, QD, INTRAVENOUS
     Route: 042
     Dates: start: 20050708, end: 20050708
  2. ACETAMINOPHEN [Concomitant]

REACTIONS (6)
  - CONFUSIONAL STATE [None]
  - DIPLOPIA [None]
  - DYSARTHRIA [None]
  - FACIAL PALSY [None]
  - HYPERTENSIVE CRISIS [None]
  - INCOHERENT [None]
